FAERS Safety Report 9669014 (Version 1)
Quarter: 2013Q4

REPORT INFORMATION
  Report Type: Spontaneous
  Country: US (occurrence: US)
  Receive Date: 20131105
  Receipt Date: 20131105
  Transmission Date: 20140711
  Serious: No
  Sender: FDA-Public Use
  Company Number: US-PFIZER INC-2013311793

PATIENT
  Age: 54 Year
  Sex: Female
  Weight: 115.19 kg

DRUGS (1)
  1. PRISTIQ [Suspect]
     Indication: DEPRESSION
     Dosage: 50 MG, 1X/DAY
     Route: 048
     Dates: start: 2008, end: 2012

REACTIONS (2)
  - Sleep disorder [Unknown]
  - Therapeutic response unexpected [Unknown]
